FAERS Safety Report 4381955-0 (Version None)
Quarter: 2004Q2

REPORT INFORMATION
  Report Type: 
  Country: None (occurrence: None)
  Receive Date: 20040615
  Receipt Date: 20040610
  Transmission Date: 20050107
  Serious: Yes (Life-Threatening, Hospitalization)
  Sender: FDA-Public Use
  Company Number: A044-002-005040

PATIENT
  Age: 78 Year
  Sex: Female

DRUGS (3)
  1. ARICEPT [Suspect]
     Indication: SENILE DEMENTIA
     Dosage: SEE IMAGE
     Route: 048
     Dates: start: 20020211, end: 20040101
  2. ARICEPT [Suspect]
     Indication: SENILE DEMENTIA
     Dosage: SEE IMAGE
     Route: 048
     Dates: start: 20040101, end: 20040101
  3. ARICEPT [Suspect]
     Indication: SENILE DEMENTIA
     Dosage: SEE IMAGE
     Route: 048
     Dates: start: 20040101, end: 20040206

REACTIONS (5)
  - DIARRHOEA [None]
  - EXTRAPYRAMIDAL DISORDER [None]
  - HYPONATRAEMIA [None]
  - TREMOR [None]
  - VOMITING [None]
